FAERS Safety Report 4452783-2 (Version None)
Quarter: 2004Q3

REPORT INFORMATION
  Report Type: 
  Country: None (occurrence: None)
  Receive Date: 20040916
  Receipt Date: 20040902
  Transmission Date: 20050211
  Serious: Yes (Life-Threatening, Hospitalization, Disabling)
  Sender: FDA-Public Use
  Company Number: 2004AP01461

PATIENT
  Age: 77 Year
  Sex: Male

DRUGS (11)
  1. IRESSA [Suspect]
     Indication: LUNG ADENOCARCINOMA
     Dosage: 250 MG DAILY PO
     Route: 048
     Dates: start: 20031020, end: 20031120
  2. IRESSA [Suspect]
     Indication: NON-SMALL CELL LUNG CANCER RECURRENT
     Dosage: 250 MG DAILY PO
     Route: 048
     Dates: start: 20031020, end: 20031120
  3. ZYLORIC ^FAES^ [Concomitant]
  4. NEUQUINON [Concomitant]
  5. HARNAL [Concomitant]
  6. SELBEX [Concomitant]
  7. BISOLVON [Concomitant]
  8. LOXONIN [Concomitant]
  9. HALCION [Concomitant]
  10. CISPLATIN [Concomitant]
  11. RADIOTHERAPY [Concomitant]

REACTIONS (9)
  - BENIGN PROSTATIC HYPERPLASIA [None]
  - CONDITION AGGRAVATED [None]
  - CYSTITIS HAEMORRHAGIC [None]
  - HEPATIC CONGESTION [None]
  - HEPATIC FUNCTION ABNORMAL [None]
  - INTERSTITIAL LUNG DISEASE [None]
  - LUNG CONSOLIDATION [None]
  - PLEURAL EFFUSION [None]
  - URINARY RETENTION [None]
